FAERS Safety Report 10866412 (Version 1)
Quarter: 2015Q1

REPORT INFORMATION
  Report Type: Spontaneous
  Country: FR (occurrence: FR)
  Receive Date: 20150225
  Receipt Date: 20150225
  Transmission Date: 20150721
  Serious: Yes (Hospitalization, Other)
  Sender: FDA-Public Use
  Company Number: FR-AMGEN-FRASP2015016321

PATIENT
  Age: 60 Year
  Sex: Male

DRUGS (8)
  1. DOLIPRANE [Concomitant]
     Active Substance: ACETAMINOPHEN
     Dosage: 1 G, UNK
  2. DUOPLAVIN [Concomitant]
     Active Substance: ASPIRIN\CLOPIDOGREL
     Dosage: 1 DF, 1X/DAY AT NOON
     Dates: start: 2003
  3. AMLOR [Concomitant]
     Active Substance: AMLODIPINE BESYLATE
     Indication: HYPERTENSION
     Dosage: 10 MG, 1X/DAY IN THE MORNING
  4. LESCOL [Concomitant]
     Active Substance: FLUVASTATIN SODIUM
     Dosage: 1 DF, 1X/DAY IN THE EVENING
  5. TOPALGIC                           /00599202/ [Concomitant]
     Active Substance: TRAMADOL
     Dosage: 100 MG, 2X/DAY (ONE TABLET IN THE MORNING AND ONE TABLET IN THE EVENING)
  6. GLUCOPHAGE [Concomitant]
     Active Substance: METFORMIN HYDROCHLORIDE
     Indication: TYPE 2 DIABETES MELLITUS
     Dosage: 1000 MG, 2X/DAY (ONE IN THE MORNING AND ONE IN THE EVENING)
  7. ENBREL [Suspect]
     Active Substance: ETANERCEPT
     Indication: RHEUMATOID ARTHRITIS
     Dosage: 50 MG, WEEKLY ON TUESDAY
     Route: 058
     Dates: start: 20141125, end: 20141230
  8. METHOTREXATE [Concomitant]
     Active Substance: METHOTREXATE
     Indication: RHEUMATOID ARTHRITIS
     Dosage: 20 MG, WEEKLY ON WEDNESDAY

REACTIONS (4)
  - Lacrimation increased [Unknown]
  - Lipids abnormal [Unknown]
  - Retinal artery occlusion [Recovering/Resolving]
  - Carotid artery occlusion [Recovering/Resolving]

NARRATIVE: CASE EVENT DATE: 201412
